FAERS Safety Report 9182673 (Version 2)
Quarter: 2013Q4

REPORT INFORMATION
  Report Type: Spontaneous
  Country: DK (occurrence: DK)
  Receive Date: 20130322
  Receipt Date: 20131202
  Transmission Date: 20140711
  Serious: Yes (Life-Threatening)
  Sender: FDA-Public Use
  Company Number: DK-NOVOPROD-373461

PATIENT
  Age: 64 Year
  Sex: Female
  Weight: 86 kg

DRUGS (2)
  1. VICTOZA [Suspect]
     Indication: DIABETES MELLITUS
     Dosage: 6 MG/ML
     Route: 058
     Dates: start: 20110920, end: 20120212
  2. ANCOZAN [Concomitant]
     Indication: HYPERTENSION

REACTIONS (2)
  - Pancreatic carcinoma [Not Recovered/Not Resolved]
  - Surgery [Recovered/Resolved]
